FAERS Safety Report 8007883-7 (Version None)
Quarter: 2011Q4

REPORT INFORMATION
  Report Type: 
  Country: None (occurrence: None)
  Receive Date: 20111206
  Receipt Date: 20111130
  Transmission Date: 20120403
  Serious: Yes (Other)
  Sender: FDA-Public Use
  Company Number: 2011029179

PATIENT
  Age: 50 Year
  Sex: Female
  Weight: 84.369 kg

DRUGS (46)
  1. HIZENTRA [Suspect]
  2. CIPRO [Concomitant]
  3. ASCORBIC ACID [Concomitant]
  4. CELEXA [Concomitant]
  5. CHLORZOXAZONE [Concomitant]
  6. PRENATAL (PRENATAL /00231801/) [Concomitant]
  7. PREDNISONE TAB [Concomitant]
  8. VICODIN [Concomitant]
  9. BACTRIM DM (BACTRIM /00086101/) [Concomitant]
  10. IBUPROFEN [Concomitant]
  11. VITAMIN B12 [Concomitant]
  12. PREMPRO (PROVELLA-14) [Concomitant]
  13. XYZAL (LEVOCETRIIZINE DIHYDROCHLORIDE) [Concomitant]
  14. CELEBREX [Concomitant]
  15. OMEPRAZOLE [Concomitant]
  16. THEOPHYLLINE [Concomitant]
  17. ATARAX [Concomitant]
  18. HIZENTRA [Suspect]
  19. FLONASE [Concomitant]
  20. SYMBICORT [Concomitant]
  21. MAGNESIUM (MAGNESIUM) [Concomitant]
  22. VITAMIN B (VITAMIN B) [Concomitant]
  23. PROMETHAZINE [Concomitant]
  24. SINGULAIR [Concomitant]
  25. KLONOPIN [Concomitant]
  26. PROAIR (PROCATEROL HYDROCHLORIDE) [Concomitant]
  27. CALCIUM + D (OYSTER SHELL CALCIUM WITH VITAMIN D/01675501/) [Concomitant]
  28. B-100 COMPLEX (NICOTINAM, W/PYRIDOXI, HCL/RIBOFL./THIAM. HCL) [Concomitant]
  29. HIZENTRA [Suspect]
  30. ALBUTEROL [Concomitant]
  31. OXYBUTYNIN [Concomitant]
  32. DIOVAN [Concomitant]
  33. GABAPENTIN [Concomitant]
  34. HYDOCODONE-APAP (PROCET /01554201/) [Concomitant]
  35. TREXIMET (SUMATRIPTAN) [Concomitant]
  36. FOSAMAX [Concomitant]
  37. PRAVASTATIN [Concomitant]
  38. TESSALON [Concomitant]
  39. RANITIDINE HYDROCHLORIDE [Concomitant]
  40. HIZENTRA [Suspect]
     Indication: IMMUNODEFICIENCY COMMON VARIABLE
     Dosage: SEE IMAGE
     Route: 058
     Dates: start: 20101103
  41. HIZENTRA [Suspect]
     Indication: IMMUNODEFICIENCY COMMON VARIABLE
     Dosage: SEE IMAGE
     Route: 058
     Dates: start: 20110630
  42. HIZENTRA [Suspect]
     Indication: IMMUNODEFICIENCY COMMON VARIABLE
     Dosage: SEE IMAGE
     Route: 058
     Dates: start: 20101103
  43. HIZENTRA [Suspect]
     Indication: IMMUNODEFICIENCY COMMON VARIABLE
     Dosage: SEE IMAGE
     Route: 058
     Dates: start: 20110719
  44. HIZENTRA [Suspect]
     Indication: IMMUNODEFICIENCY COMMON VARIABLE
     Dosage: SEE IMAGE
     Route: 058
     Dates: start: 20101103
  45. SEROQUEL XR (QUETIAPINE) [Concomitant]
  46. FISH OIL (FISH OIL) [Concomitant]

REACTIONS (6)
  - KIDNEY INFECTION [None]
  - RENAL DISORDER [None]
  - HEADACHE [None]
  - DYSPNOEA [None]
  - INFUSION RELATED REACTION [None]
  - SINUSITIS [None]
